FAERS Safety Report 5252156-9 (Version None)
Quarter: 2007Q1

REPORT INFORMATION
  Report Type: 
  Country: None (occurrence: None)
  Receive Date: 20070226
  Receipt Date: 20070209
  Transmission Date: 20070707
  Serious: Yes (Hospitalization)
  Sender: FDA-Public Use
  Company Number: 010677

PATIENT
  Sex: Male
  Weight: 113.14 kg

DRUGS (5)
  1. DEXTROAMPHETAMINE SULFATE [Suspect]
     Indication: DISTURBANCE IN ATTENTION
     Dosage: 3 TABLET, QD; ORAL
     Route: 048
  2. ZYPREXA (OLANZAPINE) [Concomitant]
  3. PAXIL [Concomitant]
  4. ATIVAN [Concomitant]
  5. KLONOPIN [Concomitant]

REACTIONS (5)
  - ASTHENIA [None]
  - BACK PAIN [None]
  - DRUG INEFFECTIVE [None]
  - LOSS OF CONSCIOUSNESS [None]
  - ROAD TRAFFIC ACCIDENT [None]
